FAERS Safety Report 8848222 (Version 2)
Quarter: 2015Q3

REPORT INFORMATION
  Report Type: Report from Study
  Country: US (occurrence: US)
  Receive Date: 20121018
  Receipt Date: 20150814
  Transmission Date: 20151125
  Serious: Yes (Other)
  Sender: FDA-Public Use
  Company Number: US-ROCHE-1125390

PATIENT
  Sex: Male

DRUGS (10)
  1. NUTROPIN [Suspect]
     Active Substance: SOMATROPIN
     Indication: GROWTH HORMONE DEFICIENCY
     Route: 058
     Dates: start: 199201, end: 199301
  2. NUTROPIN [Suspect]
     Active Substance: SOMATROPIN
     Route: 058
     Dates: start: 199509
  3. PROTROPIN [Suspect]
     Active Substance: SOMATREM
     Route: 058
  4. PROTROPIN [Suspect]
     Active Substance: SOMATREM
     Route: 058
     Dates: start: 19920131
  5. PROTROPIN [Suspect]
     Active Substance: SOMATREM
     Indication: GROWTH HORMONE DEFICIENCY
     Route: 058
     Dates: start: 19920902
  6. SYNTHROID [Concomitant]
     Active Substance: LEVOTHYROXINE SODIUM
     Route: 065
  7. NUTROPIN [Suspect]
     Active Substance: SOMATROPIN
     Route: 058
  8. NUTROPIN [Suspect]
     Active Substance: SOMATROPIN
     Route: 058
  9. NUTROPIN [Suspect]
     Active Substance: SOMATROPIN
     Route: 058
  10. NUTROPIN [Suspect]
     Active Substance: SOMATROPIN
     Route: 058

REACTIONS (3)
  - Osteochondrosis [Unknown]
  - Disturbance in attention [Unknown]
  - Osteonecrosis [Unknown]
